FAERS Safety Report 14327510 (Version 1)
Quarter: 2017Q4

REPORT INFORMATION
  Report Type: Spontaneous
  Country: US (occurrence: US)
  Receive Date: 20171226
  Receipt Date: 20171226
  Transmission Date: 20180321
  Serious: No
  Sender: FDA-Public Use
  Company Number: None

PATIENT
  Age: 63 Year
  Sex: Male

DRUGS (1)
  1. PANTOPRAZOLE [Suspect]
     Active Substance: PANTOPRAZOLE
     Indication: PEPTIC ULCER
     Route: 048
     Dates: start: 20170413, end: 20170712

REACTIONS (1)
  - Nephritis [None]

NARRATIVE: CASE EVENT DATE: 20170701
